FAERS Safety Report 21286908 (Version 2)
Quarter: 2022Q4

REPORT INFORMATION
  Report Type: Report from Study
  Country: US (occurrence: US)
  Receive Date: 20220902
  Receipt Date: 20221014
  Transmission Date: 20230113
  Serious: Yes (Other)
  Sender: FDA-Public Use
  Company Number: US-UCBSA-2021053770

PATIENT
  Age: 54 Year
  Sex: Female

DRUGS (7)
  1. CERTOLIZUMAB PEGOL [Suspect]
     Active Substance: CERTOLIZUMAB PEGOL
     Indication: Psoriatic arthropathy
     Dosage: 400 MILLIGRAM, EV 2 WEEKS(QOW)
     Route: 058
     Dates: start: 202110, end: 2021
  2. CERTOLIZUMAB PEGOL [Suspect]
     Active Substance: CERTOLIZUMAB PEGOL
     Dosage: 400 MILLIGRAM, EV 4 WEEKS
     Route: 058
     Dates: start: 20211110, end: 20220524
  3. CERTOLIZUMAB PEGOL [Suspect]
     Active Substance: CERTOLIZUMAB PEGOL
     Dosage: 400 MILLIGRAM, EV 4 WEEKS
     Dates: start: 2022
  4. PREGABALIN [Concomitant]
     Active Substance: PREGABALIN
     Indication: Product used for unknown indication
     Dosage: UNK
  5. CYMBALTA [Concomitant]
     Active Substance: DULOXETINE HYDROCHLORIDE
     Indication: Product used for unknown indication
  6. COVID-19 VACCINE [Concomitant]
     Indication: COVID-19 immunisation
     Dosage: UNK
     Dates: start: 202111, end: 202111
  7. COVID-19 VACCINE [Concomitant]
     Dosage: UNK
     Dates: start: 20220522, end: 20220522

REACTIONS (12)
  - Psoriatic arthropathy [Recovering/Resolving]
  - Syncope [Not Recovered/Not Resolved]
  - Headache [Recovering/Resolving]
  - Fear of injection [Recovering/Resolving]
  - Nausea [Recovered/Resolved]
  - Immunisation reaction [Recovering/Resolving]
  - Injection site mass [Recovering/Resolving]
  - Feeling abnormal [Recovering/Resolving]
  - Weight increased [Recovering/Resolving]
  - Therapeutic product effect incomplete [Unknown]
  - COVID-19 immunisation [Unknown]
  - Pain [Not Recovered/Not Resolved]

NARRATIVE: CASE EVENT DATE: 20211101
